FAERS Safety Report 5036951-7 (Version None)
Quarter: 2006Q2

REPORT INFORMATION
  Report Type: 
  Country: None (occurrence: None)
  Receive Date: 20060622
  Receipt Date: 20060214
  Transmission Date: 20061013
  Serious: Yes (Death)
  Sender: FDA-Public Use
  Company Number: 7273

PATIENT
  Sex: Female
  Weight: 93.8946 kg

DRUGS (3)
  1. PAPAIN/UREA CREAM (EZTHEZYME 830) ETHEX CORPORATION [Suspect]
     Indication: RADIATION INJURY
     Dates: start: 20031010, end: 20031027
  2. PAPAIN/UREA CREAM (EZTHEZYME 830) ETHEX CORPORATION [Suspect]
     Indication: ULCER
     Dates: start: 20031010, end: 20031027
  3. WOUND CLEANED AND DRESSED WITH ACCUZYME [Concomitant]

REACTIONS (2)
  - ARTERIAL RUPTURE [None]
  - HAEMORRHAGE [None]
